FAERS Safety Report 7377958-4 (Version None)
Quarter: 2011Q1

REPORT INFORMATION
  Report Type: 
  Country: None (occurrence: None)
  Receive Date: 20110316
  Receipt Date: 20110302
  Transmission Date: 20110831
  Serious: Yes (Other)
  Sender: FDA-Public Use
  Company Number: 2011P1004749

PATIENT
  Age: 48 Year
  Sex: Male
  Weight: 82.5547 kg

DRUGS (8)
  1. PEXEVA [Concomitant]
  2. FENTANYL-25 [Suspect]
     Indication: MIGRAINE
     Dosage: 1 PATCH;QID;TDER
     Route: 062
     Dates: start: 20101126, end: 20101207
  3. FENTANYL-25 [Suspect]
     Indication: NECK PAIN
     Dosage: 1 PATCH;QID;TDER
     Route: 062
     Dates: start: 20101126, end: 20101207
  4. FENTANYL-25 [Suspect]
     Indication: TESTICULAR PAIN
     Dosage: 1 PATCH;QID;TDER
     Route: 062
     Dates: start: 20101126, end: 20101207
  5. MS CONTIN [Concomitant]
  6. BUSPAR [Concomitant]
  7. NORCO [Concomitant]
  8. KLONOPIN [Concomitant]

REACTIONS (3)
  - DRUG INEFFECTIVE [None]
  - DYSPNOEA [None]
  - CHRONIC OBSTRUCTIVE PULMONARY DISEASE [None]
